FAERS Safety Report 8538145-7 (Version None)
Quarter: 2012Q3

REPORT INFORMATION
  Report Type: 
  Country: None (occurrence: None)
  Receive Date: 20120726
  Receipt Date: 20120723
  Transmission Date: 20120928
  Serious: Yes (Other)
  Sender: FDA-Public Use
  Company Number: US-BRISTOL-MYERS SQUIBB COMPANY-16461923

PATIENT
  Age: 10 Year
  Sex: Male

DRUGS (3)
  1. ABILIFY [Suspect]
     Indication: AUTISM
     Dosage: ABT 1 MONTH
     Dates: start: 20110201
  2. PROZAC [Suspect]
  3. ABILIFY [Suspect]
     Indication: IRRITABILITY
     Dosage: ABT 1 MONTH
     Dates: start: 20110201

REACTIONS (1)
  - PSYCHOTIC DISORDER [None]
